FAERS Safety Report 7419404-8 (Version None)
Quarter: 2011Q2

REPORT INFORMATION
  Report Type: 
  Country: None (occurrence: None)
  Receive Date: 20110416
  Receipt Date: 20110401
  Transmission Date: 20111010
  Serious: Yes (Death, Hospitalization)
  Sender: FDA-Public Use
  Company Number: US-CELGENEUS-163-21880-11040139

PATIENT
  Sex: Female

DRUGS (3)
  1. DEXAMETHASONE [Concomitant]
     Indication: MULTIPLE MYELOMA
     Route: 065
  2. VELCADE [Concomitant]
     Indication: MULTIPLE MYELOMA
     Route: 065
  3. REVLIMID [Suspect]
     Indication: MULTIPLE MYELOMA
     Route: 048

REACTIONS (3)
  - DYSPNOEA [None]
  - LETHARGY [None]
  - DEATH [None]
